FAERS Safety Report 6913699-2 (Version None)
Quarter: 2010Q3

REPORT INFORMATION
  Report Type: 
  Country: None (occurrence: None)
  Receive Date: 20100719
  Receipt Date: 20090323
  Transmission Date: 20110219
  Serious: No
  Sender: FDA-Public Use
  Company Number: 2009-01066

PATIENT
  Age: 35 Year
  Sex: Female
  Weight: 95.2554 kg

DRUGS (9)
  1. ZICAM COLD REMEDY NASAL GEL [Suspect]
     Dosage: 2 DOSES X 2 DAYS
     Dates: start: 20090311, end: 20090313
  2. INTERFERON [Concomitant]
  3. POLYVITE MULTIVITAMIN [Concomitant]
  4. ADRENAL FX BALANCE [Concomitant]
  5. ADRENAL PH SUPPORT [Concomitant]
  6. THYROCARE [Concomitant]
  7. PS 100 [Concomitant]
  8. RED YEAST RICE [Concomitant]
  9. SIMVASTATIN [Concomitant]

REACTIONS (3)
  - AGEUSIA [None]
  - ANOSMIA [None]
  - BURNING SENSATION [None]
